FAERS Safety Report 19750576 (Version 2)
Quarter: 2021Q3

REPORT INFORMATION
  Report Type: Spontaneous
  Country: US (occurrence: US)
  Receive Date: 20210826
  Receipt Date: 20210913
  Transmission Date: 20211014
  Serious: Yes (Hospitalization)
  Sender: FDA-Public Use
  Company Number: US-OAKRUM PHARMA-2021OAK00008

PATIENT
  Age: 19 Year
  Sex: Male
  Weight: 74.38 kg

DRUGS (4)
  1. LEUCOVORIN. [Concomitant]
     Active Substance: LEUCOVORIN
  2. PYRIMETHAMINE [Suspect]
     Active Substance: PYRIMETHAMINE
     Dosage: 25 MG, 2X/DAY
     Route: 048
     Dates: start: 20210629, end: 202106
  3. PYRIMETHAMINE [Suspect]
     Active Substance: PYRIMETHAMINE
     Indication: EYE INFECTION TOXOPLASMAL
     Dosage: 50 MG, 2X/DAY FOR 1 DAY
     Route: 048
     Dates: start: 20210628, end: 20210628
  4. SULFADIAZINE. [Suspect]
     Active Substance: SULFADIAZINE
     Indication: CHORIORETINITIS
     Dosage: UNK
     Dates: start: 202106, end: 202107

REACTIONS (9)
  - Dyskinesia [Recovered/Resolved]
  - Musculoskeletal stiffness [Recovered/Resolved]
  - Tachycardia [Recovered/Resolved]
  - Retrograde amnesia [Unknown]
  - Back disorder [Recovered/Resolved]
  - Neuralgia [Recovering/Resolving]
  - Toxoplasmosis [Recovered/Resolved]
  - Conversion disorder [Unknown]
  - Eye infection toxoplasmal [Recovered/Resolved]

NARRATIVE: CASE EVENT DATE: 2021
